FAERS Safety Report 18334000 (Version 1)
Quarter: 2020Q3

REPORT INFORMATION
  Report Type: Spontaneous
  Country: US (occurrence: US)
  Receive Date: 20200930
  Receipt Date: 20200930
  Transmission Date: 20201103
  Serious: Yes (Hospitalization)
  Sender: FDA-Public Use
  Company Number: None

PATIENT
  Age: 35 Year
  Sex: Male

DRUGS (1)
  1. DEFERASIROX 500MG TAB FOR SUSP [Suspect]
     Active Substance: DEFERASIROX
     Indication: MINERAL METABOLISM DISORDER
     Route: 048
     Dates: start: 20200731

REACTIONS (1)
  - Weight decreased [None]

NARRATIVE: CASE EVENT DATE: 20200917
